FAERS Safety Report 12010005 (Version 1)
Quarter: 2016Q1

REPORT INFORMATION
  Report Type: Spontaneous
  Country: CA (occurrence: CA)
  Receive Date: 20160205
  Receipt Date: 20160205
  Transmission Date: 20160526
  Serious: Yes (Other)
  Sender: FDA-Public Use
  Company Number: CA-TEVA-631472ACC

PATIENT
  Age: 89 Year
  Sex: Female
  Weight: 70.37 kg

DRUGS (8)
  1. MEMANTINE. [Suspect]
     Active Substance: MEMANTINE
     Indication: DEMENTIA
     Dosage: 1 DOSAGE FORMS DAILY;
     Route: 048
  2. SEROQUEL XR [Concomitant]
     Active Substance: QUETIAPINE FUMARATE
  3. MEMANTINE. [Suspect]
     Active Substance: MEMANTINE
     Indication: ABNORMAL BEHAVIOUR
  4. LEVODOPA-CARBIDOPA [Concomitant]
     Active Substance: CARBIDOPA\LEVODOPA
  5. PEG 3350 [Concomitant]
     Active Substance: POLYETHYLENE GLYCOL 3350
  6. ASA [Concomitant]
     Active Substance: ASPIRIN
  7. CEPHALEXIN. [Concomitant]
     Active Substance: CEPHALEXIN
  8. ACETAMINOPHEN. [Concomitant]
     Active Substance: ACETAMINOPHEN

REACTIONS (1)
  - Skin lesion [Unknown]
